FAERS Safety Report 4371617-8 (Version None)
Quarter: 2004Q2

REPORT INFORMATION
  Report Type: 
  Country: None (occurrence: None)
  Receive Date: 20040601
  Receipt Date: 20040517
  Transmission Date: 20050107
  Serious: Yes (Death, Hospitalization, Other)
  Sender: FDA-Public Use
  Company Number: 2004028875

PATIENT
  Age: 63 Year
  Sex: Male

DRUGS (10)
  1. ZOLOFT [Suspect]
     Indication: ILL-DEFINED DISORDER
     Dosage: 100 MG (100 MG, 1 IN 1 D), ORAL
     Route: 048
  2. NITROGLYCERIN [Concomitant]
  3. LANSOPRAZOLE [Concomitant]
  4. FUROSEMIDE [Concomitant]
  5. ATORVASTATIN (ATORVASTATIN) [Concomitant]
  6. DIGOXIN [Concomitant]
  7. AMIODARONE HCL [Concomitant]
  8. GLIMEPIRIDE [Concomitant]
  9. FOSINOPRIL SODIUM (FOSINOPRIL SODIUIM) [Concomitant]
  10. CARVEDILOL [Concomitant]

REACTIONS (22)
  - ACCIDENT [None]
  - ARRHYTHMIA [None]
  - ARTERIOSCLEROSIS [None]
  - BALANCE DISORDER [None]
  - COLD SWEAT [None]
  - COMA [None]
  - CYANOSIS [None]
  - DIABETES MELLITUS [None]
  - DIZZINESS [None]
  - DRUG LEVEL INCREASED [None]
  - DRUG TOXICITY [None]
  - FACE INJURY [None]
  - FALL [None]
  - FATIGUE [None]
  - INFLUENZA LIKE ILLNESS [None]
  - INJURY [None]
  - MYOCARDIAL INFARCTION [None]
  - PAIN [None]
  - PERIPHERAL COLDNESS [None]
  - PUPIL FIXED [None]
  - RALES [None]
  - SLEEP APNOEA SYNDROME [None]
